FAERS Safety Report 15014269 (Version 1)
Quarter: 2018Q2

REPORT INFORMATION
  Report Type: Spontaneous
  Country: US (occurrence: US)
  Receive Date: 20180615
  Receipt Date: 20180615
  Transmission Date: 20180711
  Serious: Yes (Other)
  Sender: FDA-Public Use
  Company Number: US-JNJFOC-20180609951

PATIENT
  Sex: Male

DRUGS (3)
  1. EMERGEN C [Concomitant]
     Active Substance: MINERALS\VITAMINS
     Indication: DECREASED IMMUNE RESPONSIVENESS
     Dosage: 1 TO 3 TIMES DAILY
     Route: 065
     Dates: start: 1980
  2. LOPERAMIDE HYDROCHLORIDE. [Suspect]
     Active Substance: LOPERAMIDE HYDROCHLORIDE
     Indication: BACK PAIN
     Route: 065
  3. LOPERAMIDE HYDROCHLORIDE. [Suspect]
     Active Substance: LOPERAMIDE HYDROCHLORIDE
     Route: 065

REACTIONS (4)
  - Seizure [Unknown]
  - Product use in unapproved indication [Unknown]
  - Tooth fracture [Unknown]
  - Overdose [Unknown]
